FAERS Safety Report 8030415-4 (Version None)
Quarter: 2012Q1

REPORT INFORMATION
  Report Type: 
  Country: None (occurrence: None)
  Receive Date: 20120109
  Receipt Date: 20120109
  Transmission Date: 20120608
  Serious: No
  Sender: FDA-Public Use
  Company Number: None

PATIENT
  Age: 63 Year
  Sex: Female
  Weight: 62.142 kg

DRUGS (1)
  1. ALENDRONATE SODIUM [Suspect]
     Indication: OSTEOPOROSIS
     Dosage: 1- 70MG. TABLET
     Route: 048
     Dates: start: 20090101, end: 20111212

REACTIONS (2)
  - TENDONITIS [None]
  - MUSCLE SPASMS [None]
